FAERS Safety Report 23223689 (Version 1)
Quarter: 2023Q4

REPORT INFORMATION
  Report Type: Spontaneous
  Country: IT (occurrence: IT)
  Receive Date: 20231124
  Receipt Date: 20231124
  Transmission Date: 20240110
  Serious: Yes (Other)
  Sender: FDA-Public Use
  Company Number: None

PATIENT
  Age: 80 Year
  Sex: Male

DRUGS (5)
  1. FLUOROURACIL [Suspect]
     Active Substance: FLUOROURACIL
     Indication: X-ray
     Dosage: START OF THERAPY 07/07/2023 - 04/08/2023 III CYCLE - 18/08/2023 IV CYCLE - THERAPY EVERY 14 DAYS,UNI
     Dates: start: 20230804, end: 20230818
  2. FLUOROURACIL [Suspect]
     Active Substance: FLUOROURACIL
     Indication: Colon cancer metastatic
     Dosage: START OF THERAPY 07/07/2023 - 04/08/2023 III CYCLE - 18/08/2023 IV CYCLE - THERAPY EVERY 14 DAYS, UN
     Dates: start: 20230804, end: 20230818
  3. OXALIPLATIN [Suspect]
     Active Substance: OXALIPLATIN
     Indication: Colon cancer metastatic
     Dosage: START OF THERAPY 07/07/2023 - 04/08/2023 III CYCLE - 18/08/2023 IV CYCLE - THERAPY EVERY 14 DAYS, UN
     Dates: start: 20230804, end: 20230818
  4. BEVACIZUMAB [Suspect]
     Active Substance: BEVACIZUMAB
     Indication: Colon cancer metastatic
     Dosage: START OF THERAPY 07/07/2023 - 04/08/2023 III CYCLE - 18/08/2023 IV CYCLE - THERAPY EVERY 14 DAYS,UNI
     Dates: start: 20230804, end: 20230818
  5. LEVOLEUCOVORIN [Concomitant]
     Active Substance: LEVOLEUCOVORIN
     Indication: Product used for unknown indication
     Dosage: UNIT DOSE:600MG

REACTIONS (4)
  - Thrombocytopenia [Recovering/Resolving]
  - Nausea [Recovering/Resolving]
  - Asthenia [Recovering/Resolving]
  - Vomiting [Recovering/Resolving]

NARRATIVE: CASE EVENT DATE: 20230818
